FAERS Safety Report 9706862 (Version 1)
Quarter: 2013Q4

REPORT INFORMATION
  Report Type: Spontaneous
  Country: IL (occurrence: IL)
  Receive Date: 20131125
  Receipt Date: 20131125
  Transmission Date: 20140711
  Serious: Yes (Other)
  Sender: FDA-Public Use
  Company Number: IL-JNJFOC-20131111135

PATIENT
  Sex: Female

DRUGS (4)
  1. REMICADE [Suspect]
     Indication: PRODUCT USED FOR UNKNOWN INDICATION
     Route: 042
  2. HYDROCORTISONE [Concomitant]
     Indication: PREMEDICATION
     Route: 065
  3. AHISTON [Concomitant]
     Indication: PREMEDICATION
     Route: 065
  4. PHENERGAN [Concomitant]
     Indication: PREMEDICATION
     Route: 065

REACTIONS (4)
  - Asphyxia [Unknown]
  - Infusion related reaction [Unknown]
  - Erythema [Unknown]
  - Urticaria [Unknown]
